FAERS Safety Report 6767055-0 (Version None)
Quarter: 2010Q2

REPORT INFORMATION
  Report Type: 
  Country: None (occurrence: None)
  Receive Date: 20100611
  Receipt Date: 20100601
  Transmission Date: 20101027
  Serious: Yes (Other)
  Sender: FDA-Public Use
  Company Number: GB-MYLANLABS-2010S1009649

PATIENT
  Sex: Male

DRUGS (4)
  1. AMOXICILLIN [Suspect]
     Indication: CYSTITIS
  2. AMOXICILLIN [Suspect]
  3. WARFARIN [Suspect]
     Indication: ATRIAL FIBRILLATION
  4. PHENOXYMETHYLPENICILLIN [Suspect]
     Indication: CYSTITIS

REACTIONS (3)
  - CYSTITIS [None]
  - DRUG INEFFECTIVE [None]
  - DRUG INTERACTION [None]
